FAERS Safety Report 8565593-1 (Version None)
Quarter: 2012Q3

REPORT INFORMATION
  Report Type: 
  Country: None (occurrence: None)
  Receive Date: 20120803
  Receipt Date: 20080718
  Transmission Date: 20120928
  Serious: Yes (Life-Threatening, Hospitalization)
  Sender: FDA-Public Use
  Company Number: US-009507513-2007SP017987

PATIENT

DRUGS (2)
  1. PROVENTIL [Suspect]
     Indication: ASTHMA
     Dosage: 100 ?G, UNKNOWN
     Route: 048
     Dates: start: 20070401, end: 20071105
  2. ALBUTEROL - USP (WARRICK) [Concomitant]

REACTIONS (1)
  - THERAPEUTIC PRODUCT INEFFECTIVE [None]
